FAERS Safety Report 16130696 (Version 1)
Quarter: 2019Q1

REPORT INFORMATION
  Report Type: Spontaneous
  Country: FR (occurrence: FR)
  Receive Date: 20190328
  Receipt Date: 20190328
  Transmission Date: 20190418
  Serious: Yes (Hospitalization)
  Sender: FDA-Public Use
  Company Number: FR-009507513-1903FRA008459

PATIENT
  Age: 63 Year
  Sex: Male
  Weight: 56.5 kg

DRUGS (12)
  1. HUMIRA [Suspect]
     Active Substance: ADALIMUMAB
     Indication: PSORIATIC ARTHROPATHY
     Dosage: 1 DOSAGE FORM, QOW
     Route: 058
     Dates: start: 201810, end: 201810
  2. HYDROCORTISONE. [Concomitant]
     Active Substance: HYDROCORTISONE
     Dosage: 20 MILLIGRAM, QD
     Route: 048
     Dates: end: 20181029
  3. SALAZOPYRINE [Concomitant]
     Active Substance: SULFASALAZINE
     Indication: RHEUMATIC DISORDER
     Dosage: 6 DOSAGE FORM, QD
     Route: 048
     Dates: end: 20181029
  4. SERESTA [Concomitant]
     Active Substance: OXAZEPAM
     Indication: ANXIETY
     Dosage: 75 MILLIGRAM, QD
     Route: 048
     Dates: start: 20181025
  5. BETAINE CITRATE [Concomitant]
     Active Substance: BETAINE CITRATE
     Indication: DYSPEPSIA
     Dosage: 3 DOSAGE FORM, QD
     Route: 048
     Dates: end: 20181029
  6. FOSAVANCE [Suspect]
     Active Substance: ALENDRONATE SODIUM\CHOLECALCIFEROL
     Indication: OSTEOPOROSIS
     Dosage: 1 DOSAGE FORM, QW
     Route: 048
     Dates: start: 201804, end: 201810
  7. BI-PROFENID [Concomitant]
     Active Substance: KETOPROFEN
     Indication: PAIN
     Dosage: 2 DOSAGE FORM, QD; SCORED PROLONGED RELEASE TABLET
     Route: 048
     Dates: end: 20181029
  8. VALDOXAN [Concomitant]
     Active Substance: AGOMELATINE
     Indication: DEPRESSION
     Dosage: 1 DOSAGE FORM, QD
     Route: 048
     Dates: end: 20181029
  9. ZOLPIDEM [Concomitant]
     Active Substance: ZOLPIDEM\ZOLPIDEM TARTRATE
     Indication: ANXIETY
     Dosage: 10 MILLIGRAM, QD
     Route: 048
     Dates: start: 20181025, end: 20181029
  10. SPECIAFOLDINE [Concomitant]
     Active Substance: FOLIC ACID
     Dosage: 1 DOSAGE FORM, QD
     Route: 048
     Dates: end: 20181029
  11. ESOMEPRAZOLE. [Concomitant]
     Active Substance: ESOMEPRAZOLE MAGNESIUM
     Indication: PROPHYLAXIS
     Dosage: 1 DOSAGE FORM, QD
     Route: 048
  12. UVEDOSE [Concomitant]
     Active Substance: CHOLECALCIFEROL
     Indication: OSTEOPOROSIS
     Dosage: 1 DOSAGE FORM, QM; ORAL SOLUTION IN AMPOULE
     Route: 048

REACTIONS (1)
  - Pancreatitis [Recovered/Resolved]

NARRATIVE: CASE EVENT DATE: 20181027
